FAERS Safety Report 4983959-3 (Version None)
Quarter: 2006Q2

REPORT INFORMATION
  Report Type: 
  Country: None (occurrence: None)
  Receive Date: 20060426
  Receipt Date: 20050926
  Transmission Date: 20061013
  Serious: Yes (Hospitalization)
  Sender: FDA-Public Use
  Company Number: US-MERCK-0509USA03812

PATIENT
  Age: 63 Year
  Sex: Female
  Weight: 83 kg

DRUGS (4)
  1. VIOXX [Suspect]
     Indication: ARTHRITIS
     Route: 048
     Dates: start: 20031201, end: 20040501
  2. ASPIRIN [Concomitant]
     Route: 065
     Dates: start: 20040115
  3. VICODIN [Concomitant]
     Route: 065
  4. IRON (UNSPECIFIED) [Concomitant]
     Route: 065

REACTIONS (7)
  - CARDIOVASCULAR DISORDER [None]
  - CHEST PAIN [None]
  - INFARCTION [None]
  - INTRACARDIAC THROMBUS [None]
  - MUSCLE SPASMS [None]
  - OSTEOARTHRITIS [None]
  - THROMBOSIS [None]
